FAERS Safety Report 5976055-X (Version None)
Quarter: 2008Q4

REPORT INFORMATION
  Report Type: 
  Country: None (occurrence: None)
  Receive Date: 20081202
  Receipt Date: 20081120
  Transmission Date: 20090506
  Serious: Yes (Other)
  Sender: FDA-Public Use
  Company Number: US-ROCHE-598554

PATIENT
  Sex: Male

DRUGS (2)
  1. PEG-INTERFERON A-2A (RO 25-8310) [Suspect]
     Route: 065
     Dates: start: 20081002
  2. RIBAVIRIN [Suspect]
     Route: 065
     Dates: start: 20081002

REACTIONS (4)
  - FATIGUE [None]
  - HEPATIC NEOPLASM MALIGNANT [None]
  - NAUSEA [None]
  - PYREXIA [None]
